FAERS Safety Report 7888514-3 (Version None)
Quarter: 2011Q4

REPORT INFORMATION
  Report Type: 
  Country: None (occurrence: None)
  Receive Date: 20111103
  Receipt Date: 20111102
  Transmission Date: 20120403
  Serious: Yes (Life-Threatening, Hospitalization)
  Sender: FDA-Public Use
  Company Number: PHHY2011BE96699

PATIENT
  Sex: Male
  Weight: 61.5 kg

DRUGS (3)
  1. METHYLPHENIDATE HCL [Suspect]
     Indication: ATTENTION DEFICIT/HYPERACTIVITY DISORDER
     Dosage: 0.5 DF, BID
     Dates: start: 20010101
  2. ACETAMINOPHEN [Concomitant]
     Dosage: 1 DF, DAILY
  3. ACETAMINOPHEN [Concomitant]
     Indication: MIGRAINE
     Dosage: 2 DF, DAILY

REACTIONS (3)
  - NIGHTMARE [None]
  - PARASOMNIA [None]
  - SOMNAMBULISM [None]
